FAERS Safety Report 4585857-6 (Version None)
Quarter: 2005Q1

REPORT INFORMATION
  Report Type: 
  Country: None (occurrence: None)
  Receive Date: 20050217
  Receipt Date: 20050210
  Transmission Date: 20050727
  Serious: Yes (Other)
  Sender: FDA-Public Use
  Company Number: US-GLAXOSMITHKLINE-A0544938A

PATIENT
  Age: 33 Year
  Sex: Female

DRUGS (5)
  1. PAXIL CR [Suspect]
     Indication: DEPRESSION
     Dosage: 25MG PER DAY
     Route: 048
     Dates: start: 20021001
  2. TOPAMAX [Concomitant]
  3. LITHOBID [Concomitant]
  4. ORTHO-NOVUM [Concomitant]
  5. ALLEGRA [Concomitant]

REACTIONS (10)
  - ABDOMINAL PAIN UPPER [None]
  - AGITATION [None]
  - DIARRHOEA [None]
  - DIZZINESS [None]
  - DRUG WITHDRAWAL SYNDROME [None]
  - NAUSEA [None]
  - NIGHTMARE [None]
  - SUICIDAL IDEATION [None]
  - TINNITUS [None]
  - VERTIGO [None]
